FAERS Safety Report 5095666-X (Version None)
Quarter: 2006Q3

REPORT INFORMATION
  Report Type: 
  Country: None (occurrence: None)
  Receive Date: 20060731
  Receipt Date: 20060426
  Transmission Date: 20061208
  Serious: No
  Sender: FDA-Public Use
  Company Number: 2006PV012756

PATIENT
  Age: 42 Year
  Sex: Female

DRUGS (6)
  1. BYETTA [Suspect]
     Indication: DIABETES MELLITUS NON-INSULIN-DEPENDENT
     Dosage: 5 MCG;BID;SC
     Route: 058
     Dates: start: 20060412
  2. PANCREASE [Concomitant]
  3. SYNTHROID [Concomitant]
  4. ACTOS [Concomitant]
  5. LIPITOR [Concomitant]
  6. LEXAPRO [Concomitant]

REACTIONS (1)
  - SUNBURN [None]
